FAERS Safety Report 7899141-6 (Version None)
Quarter: 2011Q4

REPORT INFORMATION
  Report Type: 
  Country: None (occurrence: None)
  Receive Date: 20111107
  Receipt Date: 20110914
  Transmission Date: 20120403
  Serious: No
  Sender: FDA-Public Use
  Company Number: US-AMGEN-USASP2011043297

PATIENT
  Age: 56 Year
  Sex: Female
  Weight: 54.422 kg

DRUGS (1)
  1. ENBREL [Suspect]
     Indication: RHEUMATOID ARTHRITIS
     Dosage: 50 MG, QWK
     Dates: start: 20080619

REACTIONS (3)
  - CONTUSION [None]
  - MUSCLE SPASMS [None]
  - JOINT INJURY [None]
